FAERS Safety Report 7078824-4 (Version None)
Quarter: 2010Q4

REPORT INFORMATION
  Report Type: 
  Country: None (occurrence: None)
  Receive Date: 20101102
  Receipt Date: 20101028
  Transmission Date: 20110411
  Serious: Yes (Life-Threatening, Disabling)
  Sender: FDA-Public Use
  Company Number: JP-JNJFOC-20100903543

PATIENT
  Sex: Female
  Weight: 57 kg

DRUGS (28)
  1. DOXIL [Suspect]
     Indication: OVARIAN CANCER RECURRENT
     Dosage: CYCLE 5
     Route: 042
  2. DOXIL [Suspect]
     Dosage: CYCLE 4
     Route: 042
  3. DOXIL [Suspect]
     Dosage: CYCLE 3
     Route: 042
  4. DOXIL [Suspect]
     Dosage: CYCLE 2
     Route: 042
  5. DOXIL [Suspect]
     Dosage: CYCLE 6
     Route: 042
  6. DOXIL [Suspect]
     Dosage: CYCLE 7
     Route: 042
  7. DOXIL [Suspect]
     Dosage: CYCLE 8
     Route: 042
  8. DOXIL [Suspect]
     Dosage: CYCLE 1
     Route: 042
  9. BETAMETHASONE [Concomitant]
     Indication: PROPHYLAXIS
     Route: 048
  10. BETAMETHASONE [Concomitant]
     Route: 048
  11. BETAMETHASONE [Concomitant]
     Route: 048
  12. BETAMETHASONE [Concomitant]
     Route: 048
  13. BETAMETHASONE [Concomitant]
     Route: 048
  14. BETAMETHASONE [Concomitant]
     Route: 048
  15. ZYLORIC [Concomitant]
     Indication: PROPHYLAXIS
     Route: 048
  16. ZYLORIC [Concomitant]
     Route: 048
  17. ZYLORIC [Concomitant]
     Route: 048
  18. ZYLORIC [Concomitant]
     Route: 048
  19. ZYLORIC [Concomitant]
     Route: 048
  20. ZYLORIC [Concomitant]
     Route: 048
  21. HACHIAZULE [Concomitant]
     Indication: PROPHYLAXIS
     Route: 049
  22. HACHIAZULE [Concomitant]
     Route: 049
  23. DESPA [Concomitant]
     Indication: STOMATITIS
     Route: 049
  24. DERMOVATE [Concomitant]
     Indication: RASH
     Route: 061
  25. KETOPROFEN [Concomitant]
     Indication: BACK PAIN
     Route: 003
  26. VALTREX [Concomitant]
     Indication: HERPES ZOSTER
     Route: 048
  27. WHITE PETROLATUM [Concomitant]
     Indication: HERPES ZOSTER
     Route: 061
  28. SHAKUYAKUKANZOUTOU [Concomitant]
     Indication: BACK PAIN
     Route: 048

REACTIONS (2)
  - MYELODYSPLASTIC SYNDROME [None]
  - PLATELET COUNT DECREASED [None]
